FAERS Safety Report 9420872 (Version 2)
Quarter: 2013Q3

REPORT INFORMATION
  Report Type: Spontaneous
  Country: US (occurrence: US)
  Receive Date: 20130725
  Receipt Date: 20130805
  Transmission Date: 20140515
  Serious: Yes (Hospitalization, Other)
  Sender: FDA-Public Use
  Company Number: US-TEVA-421089USA

PATIENT
  Age: 58 Year
  Sex: Female

DRUGS (2)
  1. CISPLATIN [Suspect]
     Indication: OVARIAN CANCER
     Route: 033
  2. DOXORUBICIN [Suspect]
     Indication: OVARIAN CANCER
     Route: 033

REACTIONS (1)
  - Gastric perforation [Recovered/Resolved]
